FAERS Safety Report 5140739-6 (Version None)
Quarter: 2006Q4

REPORT INFORMATION
  Report Type: 
  Country: None (occurrence: None)
  Receive Date: 20061025
  Receipt Date: 20061019
  Transmission Date: 20070319
  Serious: Yes (Other)
  Sender: FDA-Public Use
  Company Number: 2006P1000444

PATIENT
  Age: 79 Year
  Sex: Male

DRUGS (9)
  1. NICARDIPINE HYDROCHLORIDE [Suspect]
     Indication: HYPERTENSION
     Dosage: 10 ML; UNKNOWN; IV
     Route: 042
     Dates: start: 20060815
  2. FAMOTIDINE [Concomitant]
  3. VALSARTAN [Concomitant]
  4. AZELNIDIPINE [Concomitant]
  5. DOXAZOSIN MESYLATE [Concomitant]
  6. ARBEKACIN [Concomitant]
  7. CEFEPIME [Concomitant]
  8. AMINOPHYLLINE [Concomitant]
  9. METOCLOPRAMIDE [Concomitant]

REACTIONS (1)
  - PLATELET COUNT DECREASED [None]
